FAERS Safety Report 9530614 (Version 2)
Quarter: 2013Q3

REPORT INFORMATION
  Report Type: Spontaneous
  Country: GR (occurrence: GR)
  Receive Date: 20130918
  Receipt Date: 20130918
  Transmission Date: 20140515
  Serious: Yes (Life-Threatening, Other)
  Sender: FDA-Public Use
  Company Number: GR-009507513-1307GRC010847

PATIENT
  Age: 76 Year
  Sex: Female
  Weight: 68 kg

DRUGS (12)
  1. BRIDION [Suspect]
     Indication: NEUROMUSCULAR BLOCKADE
     Dosage: 2MG/KG DAILY DOSE, 50 MG INITIAL DOSE AND 10 MG REPEATED DOSE
     Route: 042
     Dates: start: 20130625, end: 20130625
  2. PROPOFOL [Concomitant]
     Dosage: 200 MG/SINGLE DOSE
     Route: 042
  3. PROPOFOL [Concomitant]
     Dosage: 200 MG/HR
     Route: 041
  4. ULTIVA [Concomitant]
     Dosage: 50-100 Y/HR
     Route: 041
  5. FENTANYL [Concomitant]
     Dosage: 200 Y/SINGLE DOSE
     Route: 042
  6. DORMICUM (MIDAZOLAM) [Concomitant]
     Dosage: 2 MG/SINGLE DOSE
     Route: 042
  7. APOTEL [Concomitant]
     Dosage: 1 G, UNK
  8. DYNASTAT [Concomitant]
     Dosage: 40 MG/SINGLE DOSE
     Route: 042
  9. ZANTAC [Concomitant]
     Dosage: 50 MG/SINGLE DOSE
  10. TRONDAMET [Concomitant]
     Dosage: 8 MG, UNK
  11. MEFOXIL [Concomitant]
     Dosage: 1 G, SINGLE DOSE
     Route: 042
  12. ATROPINE [Concomitant]
     Dosage: 1 MG, SINGLE DOSE
     Route: 042

REACTIONS (2)
  - Apnoea [Recovered/Resolved]
  - Recurrence of neuromuscular blockade [Unknown]
